FAERS Safety Report 5565472-8 (Version None)
Quarter: 2007Q4

REPORT INFORMATION
  Report Type: 
  Country: None (occurrence: None)
  Receive Date: 20071130
  Receipt Date: 20070911
  Transmission Date: 20080405
  Serious: No
  Sender: FDA-Public Use
  Company Number: US200709001570

PATIENT
  Age: 42 Year
  Sex: Female

DRUGS (4)
  1. BYETTA [Suspect]
     Indication: TYPE 2 DIABETES MELLITUS
     Dosage: 5 UG, 2/D, SUBCUTANEOUS; 10 UG, 2/D, SUBCUTANOUES
     Route: 058
     Dates: start: 20070801, end: 20070801
  2. BYETTA [Suspect]
     Indication: TYPE 2 DIABETES MELLITUS
     Dosage: 5 UG, 2/D, SUBCUTANEOUS; 10 UG, 2/D, SUBCUTANOUES
     Route: 058
     Dates: start: 20070801
  3. OMEGA 3 (FISH OIL) [Concomitant]
  4. METFORMIN HCL [Concomitant]

REACTIONS (11)
  - ANXIETY [None]
  - DRUG INEFFECTIVE [None]
  - EYE SWELLING [None]
  - HYPOAESTHESIA FACIAL [None]
  - INJECTION SITE ERYTHEMA [None]
  - INJECTION SITE NODULE [None]
  - INJECTION SITE PRURITUS [None]
  - INJECTION SITE SWELLING [None]
  - SWELLING FACE [None]
  - URTICARIA [None]
  - WEIGHT DECREASED [None]
